FAERS Safety Report 4319059-5 (Version None)
Quarter: 2004Q1

REPORT INFORMATION
  Report Type: 
  Country: None (occurrence: None)
  Receive Date: 20040318
  Receipt Date: 20040318
  Transmission Date: 20041129
  Serious: Yes (Life-Threatening, Hospitalization, Disabling)
  Sender: FDA-Public Use
  Company Number: None

PATIENT
  Age: 39 Year
  Sex: Male
  Weight: 88.4514 kg

DRUGS (1)
  1. ENBREL [Suspect]
     Indication: PSORIASIS
     Dosage: 2 VIALS/INTRADERMAL
     Route: 023
     Dates: start: 20030104, end: 20031025

REACTIONS (5)
  - BALANCE DISORDER [None]
  - CONVULSION [None]
  - DIFFICULTY IN WALKING [None]
  - HEMIPARESIS [None]
  - NERVOUS SYSTEM DISORDER [None]
